FAERS Safety Report 11477306 (Version 1)
Quarter: 2015Q3

REPORT INFORMATION
  Report Type: Spontaneous
  Country: CH (occurrence: CH)
  Receive Date: 20150909
  Receipt Date: 20150909
  Transmission Date: 20151125
  Serious: Yes (Other)
  Sender: FDA-Public Use
  Company Number: CH-PFIZER INC-2015294457

PATIENT
  Age: 6 Week
  Sex: Female

DRUGS (1)
  1. NORVASC [Suspect]
     Active Substance: AMLODIPINE BESYLATE
     Indication: HYPERTENSION
     Dosage: 5 MG, 1X/DAY
     Route: 063
     Dates: start: 20150625

REACTIONS (3)
  - Haematochezia [Unknown]
  - Exposure during breast feeding [Unknown]
  - Regurgitation [Unknown]

NARRATIVE: CASE EVENT DATE: 20150625
